FAERS Safety Report 8901777 (Version 1)
Quarter: 2012Q4

REPORT INFORMATION
  Report Type: Spontaneous
  Country: FR (occurrence: None)
  Receive Date: 20121101
  Receipt Date: 20121101
  Transmission Date: 20130627
  Serious: Yes (Death, Hospitalization, Other)
  Sender: FDA-Public Use
  Company Number: 2012RR-61257

PATIENT
  Age: 27 Year
  Sex: Male

DRUGS (4)
  1. ZOLPIDEM [Suspect]
     Indication: DRUG USE FOR UNKNOWN INDICATION
  2. CARBAMAZEPINE [Suspect]
  3. CYAMEMAZINE [Suspect]
  4. CLOBAZAM [Suspect]

REACTIONS (3)
  - Abdominal compartment syndrome [None]
  - Multi-organ failure [None]
  - Cardiac arrest [None]
